FAERS Safety Report 6273708-3 (Version None)
Quarter: 2009Q3

REPORT INFORMATION
  Report Type: 
  Country: None (occurrence: None)
  Receive Date: 20090713
  Receipt Date: 20080528
  Transmission Date: 20100115
  Serious: Yes (Other)
  Sender: FDA-Public Use
  Company Number: 560248

PATIENT
  Age: 57 Year
  Sex: Female

DRUGS (6)
  1. BONIVA [Suspect]
     Indication: OSTEOPOROSIS
     Dosage: 150 MG 1 PER MONTH
     Dates: start: 20070101, end: 20080601
  2. COMBIPATCH [Concomitant]
  3. ZOMIG [Concomitant]
  4. LEVOTHYROXINE SODIUM [Concomitant]
  5. VICODIN [Concomitant]
  6. IMITREX (SUMATRIPTAN SUCCINATE) [Concomitant]

REACTIONS (4)
  - HEADACHE [None]
  - NAUSEA [None]
  - PYREXIA [None]
  - VOMITING [None]
